FAERS Safety Report 7072938-0 (Version None)
Quarter: 2010Q4

REPORT INFORMATION
  Report Type: 
  Country: None (occurrence: None)
  Receive Date: 20101029
  Receipt Date: 20100602
  Transmission Date: 20110411
  Serious: No
  Sender: FDA-Public Use
  Company Number: A0853228A

PATIENT
  Sex: Female

DRUGS (3)
  1. ADVAIR DISKUS 100/50 [Suspect]
     Indication: ASTHMA
     Route: 055
  2. STEROIDS [Concomitant]
  3. NEBULIZER [Concomitant]

REACTIONS (3)
  - BRONCHITIS [None]
  - PRODUCT QUALITY ISSUE [None]
  - WHEEZING [None]
